FAERS Safety Report 7734238-2 (Version None)
Quarter: 2011Q3

REPORT INFORMATION
  Report Type: 
  Country: None (occurrence: None)
  Receive Date: 20110907
  Receipt Date: 20110902
  Transmission Date: 20111222
  Serious: Yes (Death, Other)
  Sender: FDA-Public Use
  Company Number: CZ-PFIZER INC-2011200360

PATIENT
  Age: 29 Year
  Sex: Male

DRUGS (14)
  1. FLUCONAZOLE [Suspect]
     Indication: HIV INFECTION
  2. CIPROFLOXACIN [Suspect]
     Indication: MYCOBACTERIUM AVIUM COMPLEX INFECTION
  3. METRONIDAZOLE [Suspect]
     Indication: MYCOBACTERIUM AVIUM COMPLEX INFECTION
  4. CEFOTAXIME [Suspect]
     Indication: MYCOBACTERIUM AVIUM COMPLEX INFECTION
  5. ABACAVIR SULFATE AND LAMIVUDINE [Suspect]
     Indication: HIV INFECTION
  6. CLARITHROMYCIN [Suspect]
     Indication: MYCOBACTERIUM AVIUM COMPLEX INFECTION
  7. TENOFOVIR DISOPROXIL FUMARATE [Suspect]
     Indication: HIV INFECTION
  8. MEROPENEM [Suspect]
     Indication: MYCOBACTERIUM AVIUM COMPLEX INFECTION
  9. ETHAMBUTOL HCL [Suspect]
     Indication: MYCOBACTERIUM AVIUM COMPLEX INFECTION
  10. FILGRASTIM [Suspect]
     Indication: HIV INFECTION
  11. EMTRICITABINE [Suspect]
     Indication: HIV INFECTION
  12. KALETRA [Suspect]
     Indication: HIV INFECTION
  13. RALTEGRAVIR POTASSIUM [Suspect]
     Indication: HIV INFECTION
  14. CEFUROXIME AXETIL [Suspect]
     Indication: MYCOBACTERIUM AVIUM COMPLEX INFECTION

REACTIONS (1)
  - DRUG RESISTANCE [None]
